FAERS Safety Report 23242807 (Version 3)
Quarter: 2024Q3

REPORT INFORMATION
  Report Type: Report from Study
  Country: BR (occurrence: BR)
  Receive Date: 20231129
  Receipt Date: 20240901
  Transmission Date: 20241017
  Serious: Yes (Hospitalization, Other)
  Sender: JOHNSON AND JOHNSON
  Company Number: BR-JNJFOC-20231065437

PATIENT
  Age: 34 Year
  Sex: Male
  Weight: 73 kg

DRUGS (5)
  1. SIMPONI [Suspect]
     Active Substance: GOLIMUMAB
     Indication: Ankylosing spondylitis
     Route: 058
  2. SIMPONI [Suspect]
     Active Substance: GOLIMUMAB
  3. GOLIMUMAB [Suspect]
     Active Substance: GOLIMUMAB
     Indication: Ankylosing spondylitis
     Route: 058
  4. GOLIMUMAB [Suspect]
     Active Substance: GOLIMUMAB
  5. GOLIMUMAB [Suspect]
     Active Substance: GOLIMUMAB

REACTIONS (3)
  - Portal vein thrombosis [Not Recovered/Not Resolved]
  - Varices oesophageal [Unknown]
  - Product dose omission issue [Unknown]

NARRATIVE: CASE EVENT DATE: 20231005
